FAERS Safety Report 7809487-5 (Version None)
Quarter: 2011Q4

REPORT INFORMATION
  Report Type: 
  Country: None (occurrence: None)
  Receive Date: 20111012
  Receipt Date: 20110929
  Transmission Date: 20120403
  Serious: Yes (Other)
  Sender: FDA-Public Use
  Company Number: PHHY2010MX84846

PATIENT
  Sex: Female

DRUGS (4)
  1. SPIRIVA [Concomitant]
     Dosage: 1 DF, UNK,DAILY
  2. COMBIVENT [Concomitant]
     Dosage: UKN, QID
  3. ONBREZ [Suspect]
     Dosage: 150 UG, UNK,DAILY 1 APPLICATION
     Dates: start: 20101022, end: 20101101
  4. SERETIDE [Concomitant]
     Dosage: 2 DF, UNK,DAILY

REACTIONS (5)
  - BRONCHITIS [None]
  - DYSPNOEA [None]
  - PNEUMONIA [None]
  - BREAST CANCER [None]
  - COUGH [None]
